FAERS Safety Report 19429811 (Version 2)
Quarter: 2021Q3

REPORT INFORMATION
  Report Type: Spontaneous
  Country: PY (occurrence: PY)
  Receive Date: 20210617
  Receipt Date: 20210725
  Transmission Date: 20211014
  Serious: Yes (Death, Hospitalization)
  Sender: FDA-Public Use
  Company Number: NVSC2021PY136273

PATIENT
  Age: 59 Year
  Sex: Female
  Weight: 104 kg

DRUGS (2)
  1. ENALAPRIL [Concomitant]
     Active Substance: ENALAPRIL
     Indication: PRODUCT USED FOR UNKNOWN INDICATION
     Dosage: 10 MG, Q12H
     Route: 065
  2. GLIVEC [Suspect]
     Active Substance: IMATINIB MESYLATE
     Indication: CHRONIC MYELOID LEUKAEMIA
     Dosage: 400 MG (4 X 100 MG)
     Route: 065
     Dates: start: 20190613

REACTIONS (2)
  - COVID-19 pneumonia [Fatal]
  - Respiratory distress [Fatal]

NARRATIVE: CASE EVENT DATE: 20210610
